FAERS Safety Report 25927584 (Version 1)
Quarter: 2025Q4

REPORT INFORMATION
  Report Type: Spontaneous
  Country: EU (occurrence: EU)
  Receive Date: 20251016
  Receipt Date: 20251016
  Transmission Date: 20260118
  Serious: Yes (Other)
  Sender: CHEPLAPHARM
  Company Number: EU-ROCHE-10000400688

PATIENT
  Age: 66 Year
  Sex: Female

DRUGS (9)
  1. CAPECITABINE [Suspect]
     Active Substance: CAPECITABINE
     Indication: Breast cancer metastatic
     Dosage: 2 WEEKS TREATMENT, 1 WEEK OFF)?DAILY DOSE: 2500 MILLIGRAM
     Route: 048
  2. HERBALS [Suspect]
     Active Substance: HERBALS
     Dosage: 10 12 DRIED LEAVES BOILED IN WATER FOR 5 7?MINUTES, 8 OUNCES ORALLY PER DAY (APPROXIMATELY 28 G),...
     Dates: start: 200709
  3. AVASTIN [Suspect]
     Active Substance: BEVACIZUMAB
     Indication: Breast cancer metastatic
     Dates: start: 200602, end: 200705
  4. GEMCITABINE [Suspect]
     Active Substance: GEMCITABINE
     Indication: Breast cancer metastatic
     Dates: start: 200602, end: 200705
  5. ABRAXANE [Suspect]
     Active Substance: PACLITAXEL
     Indication: Breast cancer metastatic
     Dates: start: 200602, end: 200705
  6. DOXIL [Suspect]
     Active Substance: DOXORUBICIN HYDROCHLORIDE
     Indication: Breast cancer metastatic
     Dates: start: 200705, end: 200709
  7. FEMARA [Concomitant]
     Active Substance: LETROZOLE
  8. TAMOXIFEN [Concomitant]
     Active Substance: TAMOXIFEN
  9. FASLODEX [Concomitant]
     Active Substance: FULVESTRANT

REACTIONS (3)
  - Metastases to lung [Recovered/Resolved]
  - Condition aggravated [Unknown]
  - Liver function test increased [Recovered/Resolved]
